FAERS Safety Report 6057280-9 (Version None)
Quarter: 2009Q1

REPORT INFORMATION
  Report Type: 
  Country: None (occurrence: None)
  Receive Date: 20090129
  Receipt Date: 20080730
  Transmission Date: 20090719
  Serious: No
  Sender: FDA-Public Use
  Company Number: A0740283A

PATIENT
  Age: 58 Year
  Sex: Male

DRUGS (5)
  1. WELLBUTRIN [Suspect]
     Indication: DEPRESSION
     Route: 048
     Dates: start: 20040801, end: 20040801
  2. PAXIL [Suspect]
     Indication: DEPRESSION
     Route: 048
     Dates: start: 20040801, end: 20040801
  3. BENICAR [Concomitant]
  4. HYDROCHLOROTHIAZIDE [Concomitant]
  5. PROPRANOLOL [Concomitant]

REACTIONS (6)
  - DRUG INEFFECTIVE [None]
  - MEMORY IMPAIRMENT [None]
  - MENTAL IMPAIRMENT [None]
  - NAUSEA [None]
  - REPETITIVE SPEECH [None]
  - SOMNOLENCE [None]
